FAERS Safety Report 4598236-2 (Version None)
Quarter: 2005Q1

REPORT INFORMATION
  Report Type: 
  Country: None (occurrence: None)
  Receive Date: 20050204
  Receipt Date: 20040511
  Transmission Date: 20050727
  Serious: Yes (Other)
  Sender: FDA-Public Use
  Company Number: PHEH2004US05186

PATIENT
  Age: 45 Year
  Sex: Male

DRUGS (1)
  1. CLOZARIL [Suspect]
     Dosage: 50 MG, QD, ORAL
     Route: 048
     Dates: start: 19990101, end: 19990101

REACTIONS (3)
  - DEPRESSION [None]
  - DISORIENTATION [None]
  - THINKING ABNORMAL [None]
